FAERS Safety Report 9091563 (Version 1)
Quarter: 2013Q1

REPORT INFORMATION
  Report Type: Report from Study
  Country: US (occurrence: US)
  Receive Date: 20130131
  Receipt Date: 20130131
  Transmission Date: 20140127
  Serious: No
  Sender: FDA-Public Use
  Company Number: US-ABBOTT-12P-163-1003708-00

PATIENT
  Age: 63 Year
  Sex: Female

DRUGS (19)
  1. HUMIRA [Suspect]
     Indication: RHEUMATOID ARTHRITIS
     Dates: start: 201205
  2. ACTIVELLA [Concomitant]
     Indication: HOT FLUSH
     Dosage: 0.1MG/0.5MG DAILY
  3. METHADONE [Concomitant]
     Indication: PRODUCT USED FOR UNKNOWN INDICATION
  4. PLAQUENIL [Concomitant]
     Indication: PRODUCT USED FOR UNKNOWN INDICATION
  5. PRISTIQ [Concomitant]
     Indication: DEPRESSION
  6. FOLIC ACID [Concomitant]
     Indication: PROPHYLAXIS
  7. AMBIEN [Concomitant]
     Indication: SLEEP DISORDER THERAPY
     Dosage: AT BEDTIME
  8. OVER THE COUNTER MEDICATIONS [Concomitant]
     Indication: CONSTIPATION
  9. IRON [Concomitant]
     Indication: PRODUCT USED FOR UNKNOWN INDICATION
  10. CALCIUM [Concomitant]
     Indication: PRODUCT USED FOR UNKNOWN INDICATION
  11. METHOTREXATE [Concomitant]
     Indication: PRODUCT USED FOR UNKNOWN INDICATION
     Dosage: 2.5MG
  12. PROMETHAZINE [Concomitant]
     Indication: INSOMNIA
  13. PROMETHAZINE [Concomitant]
     Indication: NAUSEA
  14. CLONAZEPAM [Concomitant]
     Indication: AFFECTIVE DISORDER
  15. CLONAZEPAM [Concomitant]
     Indication: INSOMNIA
  16. PRO-AIR [Concomitant]
     Indication: ASTHMA
     Dosage: 2 INHALATIONS DAILY
     Route: 048
  17. ADVAIR [Concomitant]
     Indication: ASTHMA
     Dosage: 250/50
     Route: 048
  18. LORTAB [Concomitant]
     Indication: PRODUCT USED FOR UNKNOWN INDICATION
     Dosage: UP TO 4 TIMES PER DAY (TAKES ONLY 1-2 PER WEEK)
  19. CYANOCOBALAMIN [Concomitant]
     Indication: VITAMIN SUPPLEMENTATION
     Dosage: 1000MCG/1ML

REACTIONS (10)
  - Injection site pain [Not Recovered/Not Resolved]
  - Injection site pruritus [Not Recovered/Not Resolved]
  - Incorrect storage of drug [Unknown]
  - Inappropriate schedule of drug administration [Unknown]
  - Dyspnoea [Unknown]
  - Back pain [Unknown]
  - Sinusitis [Unknown]
  - Injection site pain [Unknown]
  - Injection site mass [Unknown]
  - Sleep disorder [Unknown]
